FAERS Safety Report 16624189 (Version 3)
Quarter: 2019Q3

REPORT INFORMATION
  Report Type: Report from Study
  Country: AT (occurrence: AT)
  Receive Date: 20190724
  Receipt Date: 20190904
  Transmission Date: 20191004
  Serious: Yes (Hospitalization)
  Sender: FDA-Public Use
  Company Number: AT-ROCHE-2168944

PATIENT
  Age: 61 Year
  Sex: Female
  Weight: 55 kg

DRUGS (18)
  1. PERTUZUMAB. [Suspect]
     Active Substance: PERTUZUMAB
     Indication: HER-2 POSITIVE BREAST CANCER
     Dosage: MOST RECENT DOSE PRIOR TO THE EVENT  19/JUL/2018?MOST RECENT DOSE PRIOR TO THE EVENT: 09/AUG/2018
     Route: 042
     Dates: start: 20180719
  2. TRASTUZUMAB. [Suspect]
     Active Substance: TRASTUZUMAB
     Indication: HER-2 POSITIVE BREAST CANCER
     Dosage: MOST RECENT DOSE PRIOR TO THE EVENT: INTERMITTENT DIARRHEA: 19/JUL/2018?MOST RECENT DOSE PRIOR TO TH
     Route: 042
     Dates: start: 20180719
  3. FENISTIL [Concomitant]
     Active Substance: DIMETHINDENE
     Route: 065
     Dates: start: 20180809, end: 20190704
  4. EUTHYROX [Concomitant]
     Active Substance: LEVOTHYROXINE SODIUM
  5. NOVALGIN (METAMIZOLE SODIUM) [Concomitant]
     Active Substance: METAMIZOLE SODIUM
     Route: 065
     Dates: start: 20180727
  6. ZOFRAN [Concomitant]
     Active Substance: ONDANSETRON HYDROCHLORIDE
     Route: 065
     Dates: start: 20180920
  7. NAVELBINE [Suspect]
     Active Substance: VINORELBINE TARTRATE
     Indication: HER-2 POSITIVE BREAST CANCER
     Dosage: MOST RECENT DOSE PRIOR TO THE EVENT: 30/NOV/2018
     Route: 048
     Dates: start: 20180719
  8. DEXABENE [Concomitant]
     Route: 065
     Dates: start: 20180809, end: 20190704
  9. HYDAL [Concomitant]
     Active Substance: HYDROMORPHONE HYDROCHLORIDE
     Indication: DYSPEPSIA
  10. HALDOL [Concomitant]
     Active Substance: HALOPERIDOL
     Indication: DYSPEPSIA
     Route: 065
     Dates: start: 20180727, end: 20180815
  11. ONDANSAN [Concomitant]
     Route: 065
     Dates: start: 20180709, end: 20190206
  12. ULSAL [Concomitant]
     Active Substance: RANITIDINE HYDROCHLORIDE
     Route: 065
     Dates: start: 20180809, end: 20190704
  13. AROMASIN [Suspect]
     Active Substance: EXEMESTANE
     Indication: HER-2 POSITIVE BREAST CANCER
     Dosage: MOST RECENT DOSE: 07/MAY/2019
     Route: 048
     Dates: start: 20180719
  14. DUROTIV [Concomitant]
     Active Substance: ESOMEPRAZOLE
     Indication: NAUSEA
     Route: 065
     Dates: start: 20180819
  15. MACROGOL [Concomitant]
     Active Substance: POLYETHYLENE GLYCOLS
     Route: 065
     Dates: start: 20180719
  16. DUROTIV [Concomitant]
     Active Substance: ESOMEPRAZOLE
     Indication: DYSPEPSIA
     Route: 065
     Dates: start: 20180727
  17. HYDAL [Concomitant]
     Active Substance: HYDROMORPHONE HYDROCHLORIDE
     Indication: NAUSEA
     Route: 065
     Dates: start: 20180727
  18. HALDOL [Concomitant]
     Active Substance: HALOPERIDOL
     Indication: NAUSEA
     Route: 065
     Dates: start: 20180731, end: 20180815

REACTIONS (7)
  - Dyspepsia [Recovered/Resolved]
  - Dry skin [Recovering/Resolving]
  - Infusion related reaction [Recovered/Resolved]
  - Nausea [Recovered/Resolved]
  - Mucosal dryness [Recovering/Resolving]
  - Diarrhoea [Recovered/Resolved]
  - Vertigo [Recovered/Resolved]

NARRATIVE: CASE EVENT DATE: 20180727
